FAERS Safety Report 10573190 (Version 1)
Quarter: 2014Q4

REPORT INFORMATION
  Report Type: Spontaneous
  Country: US (occurrence: None)
  Receive Date: 20141107
  Receipt Date: 20141107
  Transmission Date: 20150529
  Serious: Yes (Life-Threatening, Other)
  Sender: FDA-Public Use
  Company Number: None

PATIENT
  Age: 30 Year
  Sex: Female
  Weight: 95.26 kg

DRUGS (1)
  1. NEXPLANON [Suspect]
     Active Substance: ETONOGESTREL
     Indication: CONTRACEPTION
     Dates: start: 20140805, end: 20141106

REACTIONS (9)
  - Autophobia [None]
  - Blood pressure increased [None]
  - Depression [None]
  - Weight increased [None]
  - Suicidal ideation [None]
  - Menstruation irregular [None]
  - Feeling abnormal [None]
  - Migraine [None]
  - Aggression [None]

NARRATIVE: CASE EVENT DATE: 20140805
